FAERS Safety Report 8116748-1 (Version None)
Quarter: 2012Q1

REPORT INFORMATION
  Report Type: 
  Country: None (occurrence: None)
  Receive Date: 20120206
  Receipt Date: 20120127
  Transmission Date: 20120608
  Serious: Yes (Other)
  Sender: FDA-Public Use
  Company Number: PHHY2012AU006846

PATIENT
  Age: 71 Year
  Sex: Male
  Weight: 84 kg

DRUGS (7)
  1. LITHIUM CARBONATE [Concomitant]
     Dosage: 250 MG, BD
  2. CLOPIDOGREL [Concomitant]
     Dosage: 75 MG, MANE
  3. METFORMIN SR [Concomitant]
     Dosage: 500 MG, NOCTE
  4. CLOZARIL [Suspect]
     Indication: SCHIZOPHRENIA
     Dosage: 300 MG, NOCTE
     Route: 048
  5. COLOXYL WITH SENNA [Concomitant]
     Dosage: 2 TABLETS DAILY
  6. MOVIPREP [Concomitant]
     Dosage: 1 SACHET BD
  7. VALPROATE SODIUM [Concomitant]
     Dosage: 500 MG MANE, 1 G NOCTE

REACTIONS (18)
  - PERICARDIAL EFFUSION [None]
  - HYPERHIDROSIS [None]
  - LEFT ATRIAL DILATATION [None]
  - PALPITATIONS [None]
  - BLOOD CREATINE PHOSPHOKINASE DECREASED [None]
  - CARDIAC FAILURE [None]
  - SYSTOLIC DYSFUNCTION [None]
  - TROPONIN I INCREASED [None]
  - VENTRICULAR HYPOKINESIA [None]
  - DYSPNOEA [None]
  - PALLOR [None]
  - CARDIAC FLUTTER [None]
  - CHEST PAIN [None]
  - VENTRICULAR HYPERTROPHY [None]
  - EJECTION FRACTION DECREASED [None]
  - AORTIC DILATATION [None]
  - DIZZINESS [None]
  - MALAISE [None]
